FAERS Safety Report 8377568-6 (Version None)
Quarter: 2012Q2

REPORT INFORMATION
  Report Type: 
  Country: None (occurrence: None)
  Receive Date: 20120522
  Receipt Date: 20120511
  Transmission Date: 20120825
  Serious: Yes (Hospitalization)
  Sender: FDA-Public Use
  Company Number: US-PFIZER INC-2012104082

PATIENT
  Sex: Female
  Weight: 114.65 kg

DRUGS (2)
  1. IBUPROFEN [Concomitant]
     Indication: BACK PAIN
     Dosage: 600 MG, AS NEEDED
     Route: 048
     Dates: start: 20080101
  2. DESVENLAFAXINE SUCCINATE MONOHYDRATE [Suspect]
     Indication: MAJOR DEPRESSION
     Dosage: 50 MG, 1X/DAY
     Route: 048
     Dates: start: 20120417, end: 20120422

REACTIONS (2)
  - SUICIDAL IDEATION [None]
  - DEPRESSION [None]
